FAERS Safety Report 11574455 (Version 1)
Quarter: 2015Q3

REPORT INFORMATION
  Report Type: Spontaneous
  Country: US (occurrence: None)
  Receive Date: 20150929
  Receipt Date: 20150929
  Transmission Date: 20151125
  Serious: Yes (Other)
  Sender: FDA-Public Use
  Company Number: None

PATIENT
  Age: 51 Year
  Sex: Male
  Weight: 90.72 kg

DRUGS (13)
  1. METOPROLOL TARTRATE. [Concomitant]
     Active Substance: METOPROLOL TARTRATE
  2. PEPCID [Concomitant]
     Active Substance: FAMOTIDINE
  3. PLAVIX [Concomitant]
     Active Substance: CLOPIDOGREL BISULFATE
  4. LISINOPRIL. [Concomitant]
     Active Substance: LISINOPRIL
  5. IMDUR [Concomitant]
     Active Substance: ISOSORBIDE MONONITRATE
  6. FAMOTIDINE. [Concomitant]
     Active Substance: FAMOTIDINE
  7. ASPIRIN. [Concomitant]
     Active Substance: ASPIRIN
  8. ATORVASTATIN [Concomitant]
     Active Substance: ATORVASTATIN
  9. ALDACTONE [Suspect]
     Active Substance: SPIRONOLACTONE
     Indication: EAR DISORDER
     Dosage: 1 PILL
     Route: 048
     Dates: start: 20120715, end: 20141017
  10. ISOSORBIDE. [Concomitant]
     Active Substance: ISOSORBIDE
  11. LIPITOR [Concomitant]
     Active Substance: ATORVASTATIN CALCIUM
  12. CLOPIDOGREL [Concomitant]
     Active Substance: CLOPIDOGREL BISULFATE
  13. PRINIVIL [Concomitant]
     Active Substance: LISINOPRIL

REACTIONS (5)
  - Chest pain [None]
  - Gynaecomastia [None]
  - Incorrect drug administration duration [None]
  - Breast pain [None]
  - Nipple pain [None]
